FAERS Safety Report 23888086 (Version 1)
Quarter: 2024Q2

REPORT INFORMATION
  Report Type: Spontaneous
  Country: US (occurrence: US)
  Receive Date: 20240523
  Receipt Date: 20240523
  Transmission Date: 20240716
  Serious: No
  Sender: FDA-Public Use
  Company Number: US-AUROBINDO-AUR-APL-2023-068578

PATIENT
  Sex: Female

DRUGS (2)
  1. LORATADINE [Interacting]
     Active Substance: LORATADINE
     Indication: Product used for unknown indication
     Dosage: UNK
     Route: 065
  2. AMLODIPINE\LOSARTAN [Interacting]
     Active Substance: AMLODIPINE\LOSARTAN
     Indication: Product used for unknown indication
     Dosage: UNK
     Route: 065

REACTIONS (2)
  - Blood pressure inadequately controlled [Unknown]
  - Drug interaction [Unknown]
